FAERS Safety Report 14692531 (Version 5)
Quarter: 2019Q1

REPORT INFORMATION
  Report Type: Spontaneous
  Country: US (occurrence: US)
  Receive Date: 20180329
  Receipt Date: 20190307
  Transmission Date: 20190417
  Serious: No
  Sender: FDA-Public Use
  Company Number: US-PFIZER INC-2018127965

PATIENT
  Age: 69 Year
  Sex: Female

DRUGS (4)
  1. IBRANCE [Suspect]
     Active Substance: PALBOCICLIB
     Dosage: 125 MG, CYCLIC (DAILY FOR 21 DAYS ON THEN 7 DAYS OFF)
     Route: 048
     Dates: start: 201707
  2. FASLODEX [Suspect]
     Active Substance: FULVESTRANT
     Dosage: 500 MG, UNK [TWO INJECTIONS, ONE IN EACH BUTTOCK EVERY 28 DAYS]
     Dates: start: 201707
  3. IBRANCE [Suspect]
     Active Substance: PALBOCICLIB
     Indication: BREAST CANCER METASTATIC
     Dosage: 125 MG, CYCLIC (ONCE A DAY, 21 DAYS ON AND OFF FOR 7 DAYS)
     Route: 048
     Dates: start: 201707, end: 2017
  4. FASLODEX [Suspect]
     Active Substance: FULVESTRANT
     Indication: BREAST CANCER METASTATIC
     Dosage: 1000 MG, SINGLE (2 DOSES OF 500 MG EACH GIVEN AT THE SAME TIME IN BOTH BUTT CHEEKS)
     Dates: start: 201707, end: 201707

REACTIONS (5)
  - Tumour marker increased [Not Recovered/Not Resolved]
  - Pain [Recovered/Resolved]
  - Alopecia [Not Recovered/Not Resolved]
  - Emotional disorder [Unknown]
  - Fatigue [Not Recovered/Not Resolved]

NARRATIVE: CASE EVENT DATE: 201707
